FAERS Safety Report 6035432-1 (Version None)
Quarter: 2009Q1

REPORT INFORMATION
  Report Type: 
  Country: None (occurrence: None)
  Receive Date: 20090113
  Receipt Date: 20090108
  Transmission Date: 20090719
  Serious: Yes (Hospitalization)
  Sender: FDA-Public Use
  Company Number: US-JNJFOC-20090101673

PATIENT
  Sex: Female
  Weight: 68.04 kg

DRUGS (13)
  1. FENTANYL TRANSDERMAL SYSTEM [Suspect]
     Route: 062
  2. FENTANYL TRANSDERMAL SYSTEM [Suspect]
     Route: 062
  3. FENTANYL TRANSDERMAL SYSTEM [Suspect]
     Indication: HERPES VIRUS INFECTION
     Route: 062
  4. FENTANYL TRANSDERMAL SYSTEM [Suspect]
     Indication: HERPES VIRUS INFECTION
     Route: 062
  5. UNKNOWN ALLERGY SHOTS [Suspect]
     Indication: SEASONAL ALLERGY
     Route: 065
  6. NEURONTIN [Suspect]
     Indication: NEURALGIA
     Route: 048
  7. ATIVAN [Suspect]
     Indication: ANXIETY
     Route: 048
  8. ZOLOFT [Suspect]
     Indication: DEPRESSION
     Route: 048
  9. ZONEGRAN [Concomitant]
     Route: 048
  10. ZONEGRAN [Concomitant]
     Indication: MIGRAINE
     Route: 048
  11. PREDNISONE EYE DROPS [Concomitant]
     Indication: GLAUCOMA
     Route: 031
  12. ESTRASE [Concomitant]
     Indication: NIGHT SWEATS
     Route: 048
  13. VALTREX [Concomitant]
     Indication: HERPES VIRUS INFECTION
     Route: 048

REACTIONS (5)
  - ANAPHYLACTIC SHOCK [None]
  - HYPERHIDROSIS [None]
  - INCORRECT DRUG ADMINISTRATION DURATION [None]
  - WEIGHT INCREASED [None]
  - WITHDRAWAL SYNDROME [None]
